FAERS Safety Report 7761207-9 (Version None)
Quarter: 2011Q3

REPORT INFORMATION
  Report Type: 
  Country: None (occurrence: None)
  Receive Date: 20110920
  Receipt Date: 20110906
  Transmission Date: 20111222
  Serious: Yes (Life-Threatening, Other)
  Sender: FDA-Public Use
  Company Number: GB-RANBAXY-2009RR-25627

PATIENT
  Age: 54 Year
  Sex: Male

DRUGS (7)
  1. SILDENAFIL CITRATE [Suspect]
     Indication: ERECTILE DYSFUNCTION
     Dosage: 25 MG, UNK
     Route: 065
  2. ASPIRIN [Concomitant]
     Indication: PRODUCT USED FOR UNKNOWN INDICATION
     Route: 065
  3. METFORMIN HCL [Suspect]
     Indication: DIABETES MELLITUS
     Route: 048
  4. ACETAMINPHEN AND CODEINE PHOSPHATE [Suspect]
     Indication: ANALGESIC THERAPY
     Dosage: 2 DF, UNK
     Route: 048
  5. HUMIRA [Suspect]
     Indication: PSORIATIC ARTHROPATHY
     Dosage: 40 MG, UNK
     Route: 058
     Dates: start: 20070213, end: 20080930
  6. SIMVASTATIN [Suspect]
     Indication: BLOOD CHOLESTEROL INCREASED
     Route: 048
  7. LAMISIL [Suspect]
     Indication: FUNGAL INFECTION
     Dosage: UNK
     Route: 048

REACTIONS (6)
  - TOOTH ABSCESS [None]
  - EPSTEIN-BARR VIRUS ANTIBODY POSITIVE [None]
  - HODGKIN'S DISEASE [None]
  - WEIGHT INCREASED [None]
  - PYREXIA [None]
  - ONYCHOMYCOSIS [None]
